FAERS Safety Report 7506131-1 (Version None)
Quarter: 2011Q2

REPORT INFORMATION
  Report Type: 
  Country: None (occurrence: None)
  Receive Date: 20110526
  Receipt Date: 20110513
  Transmission Date: 20111010
  Serious: Yes (Life-Threatening, Hospitalization)
  Sender: FDA-Public Use
  Company Number: SI-CELGENEUS-261-20785-11051617

PATIENT
  Age: 63 Year
  Sex: Male
  Weight: 107 kg

DRUGS (4)
  1. METHYLPREDNISOLONE ACETATE [Concomitant]
     Indication: MULTIPLE MYELOMA
     Route: 065
     Dates: start: 20070727
  2. THALIDOMIDE [Suspect]
     Dosage: 25 MILLIGRAM
     Route: 048
     Dates: start: 20100429, end: 20101216
  3. ASPIRIN [Concomitant]
     Dosage: 100 MILLIGRAM
     Route: 048
  4. THALIDOMIDE [Suspect]
     Indication: MULTIPLE MYELOMA
     Dosage: 50 MILLIGRAM
     Route: 048
     Dates: start: 20070727, end: 20100428

REACTIONS (1)
  - ACUTE LYMPHOCYTIC LEUKAEMIA [None]
